FAERS Safety Report 8461909-5 (Version None)
Quarter: 2012Q2

REPORT INFORMATION
  Report Type: 
  Country: None (occurrence: None)
  Receive Date: 20120323
  Receipt Date: 20110923
  Transmission Date: 20120825
  Serious: Yes (Other)
  Sender: FDA-Public Use
  Company Number: 163-21880-11093166

PATIENT
  Age: 80 Year
  Sex: Male
  Weight: 71.2147 kg

DRUGS (17)
  1. FUROSEMIDE [Concomitant]
  2. OMEPRAZOLE [Concomitant]
  3. ZOLPIDEM [Concomitant]
  4. DUONEB (COMBIVENT) (AEROSOL FOR INHALATION) [Concomitant]
  5. LISINOPRIL [Concomitant]
  6. LESSIN (EUGYNON) [Concomitant]
  7. NITROGLYCERIN [Concomitant]
  8. POTASSIUM CHLORIDE [Concomitant]
  9. CARDIZEM CD [Concomitant]
  10. COUMADIN [Concomitant]
  11. REVLIMID [Suspect]
     Indication: MYELOFIBROSIS
     Dosage: 5 MG, 1 IN 1 D, PO, 5 MG, 1 IN 1 D, PO
     Route: 048
     Dates: start: 20110805, end: 20110818
  12. REVLIMID [Suspect]
     Indication: MYELOFIBROSIS
     Dosage: 5 MG, 1 IN 1 D, PO, 5 MG, 1 IN 1 D, PO
     Route: 048
     Dates: start: 20110901, end: 20110915
  13. FLOMAX [Concomitant]
  14. IRON (IRON) [Concomitant]
  15. AVODART [Concomitant]
  16. ASPIRIN [Concomitant]
  17. ADVAIR HFA [Concomitant]

REACTIONS (1)
  - CARDIAC FAILURE CONGESTIVE [None]
